FAERS Safety Report 18861005 (Version 1)
Quarter: 2021Q1

REPORT INFORMATION
  Report Type: Report from Study
  Country: AR (occurrence: AR)
  Receive Date: 20210208
  Receipt Date: 20210208
  Transmission Date: 20210420
  Serious: Yes (Other)
  Sender: FDA-Public Use
  Company Number: NVSC2021AR023696

PATIENT
  Sex: Female

DRUGS (1)
  1. DIOVAN [Suspect]
     Active Substance: VALSARTAN
     Indication: MYOCARDIAL INFARCTION
     Dosage: 160 MG, QD (STARTED 3 YEARS AGO APPROXIMATELY)
     Route: 065

REACTIONS (8)
  - Onychomycosis [Unknown]
  - Yellow nail syndrome [Unknown]
  - Memory impairment [Unknown]
  - Hip fracture [Unknown]
  - Fungal skin infection [Unknown]
  - Pain [Unknown]
  - Fall [Unknown]
  - Nail disorder [Unknown]
